FAERS Safety Report 12110254 (Version 10)
Quarter: 2017Q2

REPORT INFORMATION
  Report Type: Report from Study
  Country: US (occurrence: US)
  Receive Date: 20160224
  Receipt Date: 20170619
  Transmission Date: 20170829
  Serious: Yes (Hospitalization)
  Sender: FDA-Public Use
  Company Number: US-ACTELION-A-US2016-131743

PATIENT
  Age: 1 Year
  Sex: Female

DRUGS (7)
  1. TRACLEER [Suspect]
     Active Substance: BOSENTAN
     Indication: PULMONARY HYPERTENSION
     Dosage: 21.25 MG, BID
     Route: 048
     Dates: start: 20161007
  2. REMODULIN [Concomitant]
     Active Substance: TREPROSTINIL
  3. LOVENOX [Concomitant]
     Active Substance: ENOXAPARIN SODIUM
  4. CARVEDILOL. [Concomitant]
     Active Substance: CARVEDILOL
  5. TRACLEER [Suspect]
     Active Substance: BOSENTAN
     Dosage: 20 MG, QD
     Route: 048
  6. TRACLEER [Suspect]
     Active Substance: BOSENTAN
     Dosage: 15 MG, BID
     Route: 048
     Dates: start: 20151218
  7. SILDENAFIL. [Concomitant]
     Active Substance: SILDENAFIL

REACTIONS (11)
  - Vomiting [Not Recovered/Not Resolved]
  - Gastroenteritis viral [Unknown]
  - Metapneumovirus infection [Unknown]
  - Rhinovirus infection [Unknown]
  - Respiratory syncytial virus infection [Unknown]
  - Fatigue [Not Recovered/Not Resolved]
  - Hypoplastic left heart syndrome [Unknown]
  - Echocardiogram abnormal [Not Recovered/Not Resolved]
  - Dehydration [Unknown]
  - Cardiac operation [Unknown]
  - Regurgitation [Unknown]

NARRATIVE: CASE EVENT DATE: 20160203
